FAERS Safety Report 5192824-0 (Version None)
Quarter: 2006Q4

REPORT INFORMATION
  Report Type: 
  Country: None (occurrence: None)
  Receive Date: 20061228
  Receipt Date: 20051114
  Transmission Date: 20070319
  Serious: No
  Sender: FDA-Public Use
  Company Number: US-GLAXOSMITHKLINE-A0582938A

PATIENT
  Sex: Male

DRUGS (1)
  1. FLONASE [Suspect]
     Indication: HOUSE DUST ALLERGY
     Route: 045
     Dates: start: 20051030

REACTIONS (1)
  - ADVERSE EVENT [None]
